FAERS Safety Report 16057197 (Version 10)
Quarter: 2021Q3

REPORT INFORMATION
  Report Type: Spontaneous
  Country: US (occurrence: US)
  Receive Date: 20190311
  Receipt Date: 20210803
  Transmission Date: 20211014
  Serious: Yes (Other)
  Sender: FDA-Public Use
  Company Number: US-PFIZER INC-2019101262

PATIENT
  Age: 57 Year
  Sex: Female

DRUGS (6)
  1. RINVOQ [Concomitant]
     Active Substance: UPADACITINIB
  2. XELJANZ XR [Suspect]
     Active Substance: TOFACITINIB CITRATE
     Dosage: 11 MG, 1X/DAY
     Route: 048
     Dates: start: 20181201
  3. XELJANZ XR [Suspect]
     Active Substance: TOFACITINIB CITRATE
     Indication: RHEUMATOID ARTHRITIS
     Dosage: 11 MG, 1X/DAY
     Route: 048
     Dates: start: 20180112
  4. METHOTREXATE. [Concomitant]
     Active Substance: METHOTREXATE
     Dosage: UNK
  5. XELJANZ XR [Suspect]
     Active Substance: TOFACITINIB CITRATE
     Dosage: 11 MG, 1X/DAY
     Route: 048
     Dates: start: 201912, end: 202106
  6. XELJANZ XR [Suspect]
     Active Substance: TOFACITINIB CITRATE
     Dosage: 11 MG, 1X/DAY
     Route: 048
     Dates: start: 20190130

REACTIONS (8)
  - Throat irritation [Unknown]
  - Nausea [Unknown]
  - Dysphagia [Unknown]
  - Sinusitis [Unknown]
  - Rhinorrhoea [Unknown]
  - Musculoskeletal stiffness [Unknown]
  - Tooth abscess [Unknown]
  - Vomiting [Unknown]

NARRATIVE: CASE EVENT DATE: 20200929
